FAERS Safety Report 12257167 (Version 1)
Quarter: 2016Q2

REPORT INFORMATION
  Report Type: Report from Study
  Country: JP (occurrence: JP)
  Receive Date: 20160412
  Receipt Date: 20160412
  Transmission Date: 20160815
  Serious: Yes (Death)
  Sender: FDA-Public Use
  Company Number: JP-SA-THYM-1002816

PATIENT
  Age: 66 Year
  Sex: Female
  Weight: 63 kg

DRUGS (61)
  1. CYCLOSPORIN [Concomitant]
     Active Substance: CYCLOSPORINE
     Indication: APLASTIC ANAEMIA
     Dosage: UNK
     Route: 065
     Dates: start: 20110815, end: 20110819
  2. ITRACONAZOLE. [Concomitant]
     Active Substance: ITRACONAZOLE
     Indication: PROPHYLAXIS
     Dosage: UNK
     Route: 065
     Dates: start: 20110806, end: 20110928
  3. BIFIDOBACTERIUM [Concomitant]
     Active Substance: BIFIDOBACTERIUM LONGUM
     Indication: DIARRHOEA
     Dosage: UNK
     Route: 065
     Dates: start: 20110807, end: 20111005
  4. LEVOFLOXACIN. [Concomitant]
     Active Substance: LEVOFLOXACIN
     Indication: PROPHYLAXIS
     Dosage: UNK
     Route: 065
     Dates: start: 20110815, end: 20110831
  5. NIFEDIPINE. [Concomitant]
     Active Substance: NIFEDIPINE
     Indication: HYPERTENSION
     Dosage: UNK
     Route: 065
     Dates: start: 20111006, end: 20111011
  6. CARPERITIDE [Concomitant]
     Active Substance: CARPERITIDE
     Indication: CARDIAC FAILURE CONGESTIVE
     Dosage: UNK
     Route: 065
     Dates: start: 20110929, end: 20110929
  7. BROTIZOLAM [Concomitant]
     Active Substance: BROTIZOLAM
     Indication: INSOMNIA
     Dosage: UNK
     Route: 065
     Dates: start: 20110821, end: 20111005
  8. VANCOMYCIN HYDROCHLORIDE. [Concomitant]
     Active Substance: VANCOMYCIN HYDROCHLORIDE
     Indication: SEPSIS
     Dosage: UNK
     Route: 065
     Dates: start: 20110924, end: 20110927
  9. DOPAMINE HYDROCHLORIDE. [Concomitant]
     Active Substance: DOPAMINE HYDROCHLORIDE
     Indication: CARDIAC FAILURE
     Dosage: UNK
     Route: 065
     Dates: start: 20110929, end: 20111004
  10. FAMOTIDINE. [Concomitant]
     Active Substance: FAMOTIDINE
     Indication: PROPHYLAXIS AGAINST GASTROINTESTINAL ULCER
     Dosage: UNK
     Route: 065
     Dates: start: 20111003, end: 20111003
  11. FAMOTIDINE. [Concomitant]
     Active Substance: FAMOTIDINE
     Indication: HYPOPHAGIA
     Dosage: UNK
     Route: 065
     Dates: start: 20111013, end: 20111019
  12. CHLORPHENIRAMINE MALEATE. [Concomitant]
     Active Substance: CHLORPHENIRAMINE MALEATE
     Indication: ALLERGY PROPHYLAXIS
     Dosage: UNK
     Route: 065
     Dates: start: 20110929, end: 20111119
  13. SODIUM CHLORIDE. [Concomitant]
     Active Substance: SODIUM CHLORIDE
     Indication: HYPOPHAGIA
     Dosage: UNK
     Route: 065
     Dates: start: 20111013, end: 20111019
  14. MANGANESE CHLORIDE/ZINC SULFATE [Concomitant]
     Indication: HYPOPHAGIA
     Dosage: UNK
     Route: 065
     Dates: start: 20111013, end: 20111019
  15. CICLOSPORIN [Concomitant]
     Active Substance: CYCLOSPORINE
     Indication: APLASTIC ANAEMIA
     Dosage: 200 MG, QD
     Route: 065
     Dates: start: 20110806, end: 20110927
  16. ALENDRONATE SODIUM. [Concomitant]
     Active Substance: ALENDRONATE SODIUM
     Indication: OSTEOPOROSIS PROPHYLAXIS
     Dosage: UNK
     Route: 065
     Dates: start: 20110811, end: 20110929
  17. REBAMIPIDE [Concomitant]
     Active Substance: REBAMIPIDE
     Indication: PROPHYLAXIS AGAINST GASTROINTESTINAL ULCER
     Dosage: UNK
     Route: 065
     Dates: start: 20110929, end: 20110929
  18. LENOGRASTIM [Concomitant]
     Active Substance: LENOGRASTIM
     Indication: APLASTIC ANAEMIA
     Dosage: UNK
     Route: 065
     Dates: start: 20110813, end: 20110906
  19. GANCICLOVIR. [Concomitant]
     Active Substance: GANCICLOVIR
     Indication: CYTOMEGALOVIRUS INFECTION
     Dosage: UNK
     Route: 065
     Dates: start: 20110914, end: 20110914
  20. FOSCARNET SODIUM. [Concomitant]
     Active Substance: FOSCARNET SODIUM
     Indication: CYTOMEGALOVIRUS INFECTION
     Dosage: UNK
     Route: 065
     Dates: start: 20110917, end: 20110926
  21. FAMOTIDINE. [Concomitant]
     Active Substance: FAMOTIDINE
     Indication: PROPHYLAXIS AGAINST GASTROINTESTINAL ULCER
     Dosage: UNK
     Route: 065
     Dates: start: 20110929, end: 20111006
  22. INSULIN HUMAN [Concomitant]
     Active Substance: INSULIN HUMAN
     Indication: DIABETES MELLITUS
     Dosage: UNK
     Route: 065
     Dates: start: 20110805, end: 20111019
  23. GANCICLOVIR. [Concomitant]
     Active Substance: GANCICLOVIR
     Indication: CYTOMEGALOVIRUS INFECTION
     Dosage: UNK
     Route: 065
     Dates: start: 20110929, end: 20111019
  24. BENFOTIAMINE [Concomitant]
     Active Substance: BENFOTIAMINE
     Indication: HYPOPHAGIA
     Dosage: UNK
     Route: 065
     Dates: start: 20110927, end: 20111006
  25. SULFAMETHOPRIM [Concomitant]
     Active Substance: SULFAMETHOXAZOLE
     Indication: ANTIFUNGAL PROPHYLAXIS
     Dosage: UNK
     Route: 065
     Dates: start: 20111007, end: 20111011
  26. DANAPAROID SODIUM [Concomitant]
     Active Substance: DANAPAROID SODIUM
     Indication: DISSEMINATED INTRAVASCULAR COAGULATION
     Dosage: UNK
     Route: 065
     Dates: start: 20111012, end: 20111019
  27. AMPHOTERICIN B. [Concomitant]
     Active Substance: AMPHOTERICIN B
     Indication: SYSTEMIC MYCOSIS
     Dosage: UNK
     Route: 065
     Dates: start: 20111016, end: 20111019
  28. PREDNISOLONE. [Concomitant]
     Active Substance: PREDNISOLONE
     Indication: APLASTIC ANAEMIA
     Dosage: UNK
     Route: 065
     Dates: start: 20110820, end: 20111012
  29. HYDROCORTISONE SODIUM SUCCINATE [Concomitant]
     Active Substance: HYDROCORTISONE SODIUM SUCCINATE
     Indication: PROPHYLAXIS
     Dosage: UNK
     Route: 065
     Dates: start: 20110812, end: 20111019
  30. INSULIN GLARGINE [Concomitant]
     Active Substance: INSULIN GLARGINE
     Indication: DIABETES MELLITUS
     Dosage: UNK
     Route: 065
     Dates: start: 20110824, end: 20110925
  31. PAZUFLOXACIN [Concomitant]
     Active Substance: PAZUFLOXACIN
     Indication: SEPSIS
     Dosage: UNK
     Route: 065
     Dates: start: 20110922, end: 20110925
  32. AZTREONAM. [Concomitant]
     Active Substance: AZTREONAM
     Indication: PNEUMONIA
     Dosage: UNK
     Route: 065
     Dates: start: 20110925, end: 20110929
  33. ALBUMIN [Concomitant]
     Active Substance: ALBUMIN HUMAN
     Indication: OEDEMA
     Dosage: UNK
     Route: 065
     Dates: start: 20110927, end: 20111006
  34. ACICLOVIR [Concomitant]
     Active Substance: ACYCLOVIR
     Indication: PROPHYLAXIS
     Dosage: UNK
     Route: 065
     Dates: start: 20110806, end: 20110921
  35. DORIPENEM [Concomitant]
     Active Substance: DORIPENEM
     Indication: SEPSIS
     Dosage: UNK
     Route: 065
     Dates: start: 20110920, end: 20110923
  36. FUROSEMIDE. [Concomitant]
     Active Substance: FUROSEMIDE
     Indication: CARDIAC FAILURE CONGESTIVE
     Dosage: UNK
     Route: 065
     Dates: start: 20110927, end: 20111002
  37. FAMOTIDINE. [Concomitant]
     Active Substance: FAMOTIDINE
     Indication: HYPOPHAGIA
     Dosage: UNK
     Route: 065
     Dates: start: 20111003, end: 20111003
  38. FAMOTIDINE. [Concomitant]
     Active Substance: FAMOTIDINE
     Indication: PROPHYLAXIS AGAINST GASTROINTESTINAL ULCER
     Dosage: UNK
     Route: 065
     Dates: start: 20111013, end: 20111019
  39. POTASSIUM CHLORIDE. [Concomitant]
     Active Substance: POTASSIUM CHLORIDE
     Indication: HYPOPHAGIA
     Dosage: UNK
     Route: 065
     Dates: start: 20110929, end: 20111006
  40. FLURBIPROFEN AXETIL [Concomitant]
     Active Substance: FLURBIPROFEN AXETIL
     Indication: PYREXIA
     Dosage: UNK
     Route: 065
     Dates: start: 20111012, end: 20111019
  41. G-CSF [Concomitant]
     Active Substance: GRANULOCYTE COLONY-STIMULATING FACTOR NOS
     Indication: APLASTIC ANAEMIA
     Dosage: UNK
     Route: 065
  42. LANSOPRAZOLE. [Concomitant]
     Active Substance: LANSOPRAZOLE
     Indication: PROPHYLAXIS AGAINST GASTROINTESTINAL ULCER
     Dosage: UNK
     Route: 065
     Dates: start: 20110806, end: 20111005
  43. ACETAMINOPHEN. [Concomitant]
     Active Substance: ACETAMINOPHEN
     Indication: PYREXIA
     Dosage: UNK
     Route: 065
     Dates: start: 20110815, end: 20110928
  44. ZOLPIDEM TARTRATE. [Concomitant]
     Active Substance: ZOLPIDEM TARTRATE
     Indication: INSOMNIA
     Dosage: UNK
     Route: 065
     Dates: start: 20110816, end: 20111017
  45. METHYLPREDNISOLONE SODIUM SUCCINATE. [Concomitant]
     Active Substance: METHYLPREDNISOLONE SODIUM SUCCINATE
     Indication: PNEUMONIA
     Dosage: UNK
     Route: 065
     Dates: start: 20110815, end: 20110819
  46. RINGER-ACETAT [Concomitant]
     Indication: HYPOPHAGIA
     Dosage: UNK
     Route: 065
     Dates: start: 20110917, end: 20110926
  47. ZOSYN [Concomitant]
     Active Substance: PIPERACILLIN SODIUM\TAZOBACTAM SODIUM
     Indication: SEPSIS
     Dosage: UNK
     Route: 065
     Dates: start: 20110929, end: 20111001
  48. FAMOTIDINE. [Concomitant]
     Active Substance: FAMOTIDINE
     Indication: HYPOPHAGIA
     Dosage: UNK
     Route: 065
     Dates: start: 20110929, end: 20111006
  49. HYDROXYZINE PAMOATE. [Concomitant]
     Active Substance: HYDROXYZINE PAMOATE
     Indication: INSOMNIA
     Dosage: UNK
     Route: 065
     Dates: start: 20110930, end: 20111019
  50. THYMOGLOBULINE [Suspect]
     Active Substance: LAPINE T-LYMPHOCYTE IMMUNE GLOBULIN
     Indication: APLASTIC ANAEMIA
     Dosage: 225 MG, QD
     Route: 042
     Dates: start: 20110815, end: 20110819
  51. FRADIOMYCIN-GRAMICIDIN S [Concomitant]
     Indication: OROPHARYNGEAL PAIN
     Dosage: UNK
     Route: 065
     Dates: start: 20110811, end: 20110816
  52. SALBUTAMOL SULFATE [Concomitant]
     Active Substance: ALBUTEROL SULFATE
     Indication: ANTIFUNGAL PROPHYLAXIS
     Dosage: UNK
     Route: 065
     Dates: start: 20110811, end: 20110811
  53. DIPHENHYDRAMINE HYDROCHLORIDE. [Concomitant]
     Active Substance: DIPHENHYDRAMINE HYDROCHLORIDE
     Indication: PROPHYLAXIS
     Dosage: UNK
     Route: 065
     Dates: start: 20110815, end: 20110819
  54. LOXOPROFEN SODIUM [Concomitant]
     Active Substance: LOXOPROFEN SODIUM
     Indication: PYREXIA
     Dosage: UNK
     Route: 065
     Dates: start: 20110929, end: 20110929
  55. BENIDIPINE HYDROCHLORIDE [Concomitant]
     Active Substance: BENIDIPINE HYDROCHLORIDE
     Indication: HYPERTENSION
     Dosage: UNK
     Route: 065
     Dates: start: 20111004, end: 20111004
  56. INSULIN HUMAN [Concomitant]
     Active Substance: INSULIN HUMAN
     Indication: DIABETES MELLITUS
     Dosage: UNK
     Route: 065
     Dates: start: 20110806, end: 20110821
  57. FILGRASTIM [Concomitant]
     Active Substance: FILGRASTIM
     Indication: APLASTIC ANAEMIA
     Dosage: UNK
     Route: 065
     Dates: start: 20110908, end: 20110927
  58. IMMUNOGLOBULIN [Concomitant]
     Active Substance: HUMAN IMMUNOGLOBULIN G
     Indication: INFECTION
     Dosage: UNK
     Route: 065
     Dates: start: 20110926, end: 20110928
  59. POTASSIUM CHLORIDE. [Concomitant]
     Active Substance: POTASSIUM CHLORIDE
     Indication: HYPOPHAGIA
     Dosage: UNK
     Route: 065
     Dates: start: 20111007, end: 20111012
  60. HALOPERIDOL. [Concomitant]
     Active Substance: HALOPERIDOL
     Indication: INSOMNIA
     Dosage: UNK
     Route: 065
     Dates: start: 20111010, end: 20111010
  61. PROPOFOL. [Concomitant]
     Active Substance: PROPOFOL
     Indication: INSOMNIA
     Dosage: UNK
     Route: 065
     Dates: start: 20111012, end: 20111015

REACTIONS (1)
  - Epstein-Barr virus associated lymphoproliferative disorder [Fatal]

NARRATIVE: CASE EVENT DATE: 20110923
